FAERS Safety Report 7511952-5 (Version None)
Quarter: 2011Q2

REPORT INFORMATION
  Report Type: 
  Country: None (occurrence: None)
  Receive Date: 20110520
  Receipt Date: 20110520
  Transmission Date: 20111010
  Serious: No
  Sender: FDA-Public Use
  Company Number: 2011SP019163

PATIENT
  Age: 44 Year
  Sex: Female
  Weight: 50 kg

DRUGS (2)
  1. LEVOTHYROXINE SODIUM [Concomitant]
  2. MICRODIOL (DESOGESTREL/ETHINYLESTRADIOL /00570801/) [Suspect]
     Indication: CONTRACEPTION
     Dosage: PO
     Route: 048
     Dates: start: 20040101, end: 20110227

REACTIONS (4)
  - HYPERCHOLESTEROLAEMIA [None]
  - MENSTRUATION DELAYED [None]
  - LABORATORY TEST ABNORMAL [None]
  - VARICOSE VEIN [None]
